FAERS Safety Report 15282716 (Version 1)
Quarter: 2018Q3

REPORT INFORMATION
  Report Type: Spontaneous
  Country: GB (occurrence: GB)
  Receive Date: 20180816
  Receipt Date: 20180816
  Transmission Date: 20181010
  Serious: Yes (Other)
  Sender: FDA-Public Use
  Company Number: GB-TEVA-2018-GB-941244

PATIENT
  Age: 82 Year
  Sex: Male
  Weight: 65.31 kg

DRUGS (2)
  1. RAMIPRIL. [Suspect]
     Active Substance: RAMIPRIL
     Route: 048
     Dates: start: 20180628, end: 20180628
  2. RAMIPRIL. [Suspect]
     Active Substance: RAMIPRIL
     Indication: HYPERTENSION
     Route: 048
     Dates: end: 20180627

REACTIONS (1)
  - Haemorrhage urinary tract [Recovering/Resolving]

NARRATIVE: CASE EVENT DATE: 20180628
